FAERS Safety Report 24385083 (Version 2)
Quarter: 2025Q1

REPORT INFORMATION
  Report Type: Spontaneous
  Country: US (occurrence: US)
  Receive Date: 20241001
  Receipt Date: 20250110
  Transmission Date: 20250409
  Serious: No
  Sender: NOVARTIS
  Company Number: US-002147023-NVSC2024US194327

PATIENT
  Sex: Female
  Weight: 64 kg

DRUGS (1)
  1. SCEMBLIX [Suspect]
     Active Substance: ASCIMINIB HYDROCHLORIDE
     Indication: Chronic myeloid leukaemia
     Dosage: 80 MG, QD
     Route: 048
     Dates: start: 202408

REACTIONS (4)
  - Myalgia [Unknown]
  - Arthralgia [Unknown]
  - Neuralgia [Unknown]
  - Fatigue [Unknown]
